FAERS Safety Report 20583032 (Version 1)
Quarter: 2022Q1

REPORT INFORMATION
  Report Type: Spontaneous
  Country: US (occurrence: US)
  Receive Date: 20220311
  Receipt Date: 20220311
  Transmission Date: 20220423
  Serious: No
  Sender: FDA-Public Use
  Company Number: US-BAUSCH-BL-2022-006176

PATIENT
  Age: 72 Year
  Sex: Female

DRUGS (6)
  1. LUMIFY [Suspect]
     Active Substance: BRIMONIDINE TARTRATE
     Indication: Dry eye
     Route: 047
     Dates: start: 202202, end: 202202
  2. LUMIFY [Suspect]
     Active Substance: BRIMONIDINE TARTRATE
     Indication: Product use in unapproved indication
  3. ADVANCED EYE RELIEF EYE WASH [Concomitant]
     Active Substance: WATER
     Indication: Product used for unknown indication
  4. SYSTANE (HYPROMELLOSE 2910 (4000 MPA.S)) [Concomitant]
     Active Substance: HYPROMELLOSE 2910 (4000 MPA.S)
     Indication: Product used for unknown indication
  5. COLLYRIUM [Concomitant]
     Indication: Product used for unknown indication
  6. EQUATE [Concomitant]
     Indication: Product used for unknown indication

REACTIONS (2)
  - Instillation site pain [Recovered/Resolved]
  - Product use in unapproved indication [Unknown]

NARRATIVE: CASE EVENT DATE: 20220201
